FAERS Safety Report 6032426-7 (Version None)
Quarter: 2009Q1

REPORT INFORMATION
  Report Type: 
  Country: None (occurrence: None)
  Receive Date: 20090109
  Receipt Date: 20081216
  Transmission Date: 20090719
  Serious: Yes (Life-Threatening, Disabling)
  Sender: FDA-Public Use
  Company Number: JP-PFIZER INC-2008099117

PATIENT

DRUGS (17)
  1. AMLODIPINE [Interacting]
     Dosage: UNK
  2. SELECTOL [Interacting]
     Dosage: UNK
     Dates: start: 20070401
  3. PYRAZINAMIDE [Interacting]
     Indication: DISSEMINATED TUBERCULOSIS
     Dates: start: 20070201, end: 20070501
  4. RIFADIN [Suspect]
     Indication: DISSEMINATED TUBERCULOSIS
     Dates: start: 20070201, end: 20070501
  5. RIFADIN [Interacting]
     Dates: start: 20070701
  6. ISCOTIN [Interacting]
     Indication: DISSEMINATED TUBERCULOSIS
     Dates: start: 20070201, end: 20070501
  7. ISCOTIN [Interacting]
     Dates: start: 20070701
  8. ACECOL [Interacting]
     Indication: HYPERTENSION
     Dosage: UNK
     Dates: start: 20070201
  9. ARTIST [Interacting]
     Indication: HYPERTENSION
     Dosage: UNK
     Dates: start: 20070201
  10. ETHAMBUTOL HCL [Suspect]
     Indication: DISSEMINATED TUBERCULOSIS
     Dates: start: 20070201, end: 20070501
  11. ETHAMBUTOL HCL [Suspect]
     Dates: start: 20070701
  12. ENALAPRIL MALEATE [Suspect]
  13. LISINOPRIL [Suspect]
  14. STREPTOMYCIN [Concomitant]
     Indication: DISSEMINATED TUBERCULOSIS
     Dates: start: 20070501
  15. DIOVAN [Concomitant]
  16. ALDOMET [Concomitant]
  17. CARDENALIN [Concomitant]

REACTIONS (3)
  - BLOOD PRESSURE INADEQUATELY CONTROLLED [None]
  - DRUG INTERACTION [None]
  - HEPATIC FAILURE [None]
